FAERS Safety Report 5286863-9 (Version None)
Quarter: 2007Q2

REPORT INFORMATION
  Report Type: 
  Country: None (occurrence: None)
  Receive Date: 20070404
  Receipt Date: 20070326
  Transmission Date: 20071010
  Serious: Yes (Life-Threatening, Other)
  Sender: FDA-Public Use
  Company Number: JP-ABBOTT-07P-087-0361701-00

PATIENT
  Sex: Male
  Weight: 38 kg

DRUGS (17)
  1. SEVORANE LIQUID FOR INHALATION [Suspect]
     Indication: GENERAL ANAESTHESIA
     Route: 055
     Dates: start: 20070130, end: 20070130
  2. SEVORANE LIQUID FOR INHALATION [Suspect]
     Route: 055
     Dates: start: 20070306, end: 20070306
  3. SEVORANE LIQUID FOR INHALATION [Suspect]
     Route: 055
     Dates: start: 20070306, end: 20070306
  4. LIDOCAINE [Suspect]
     Indication: EPIDURAL ANAESTHESIA
     Dates: start: 20070130, end: 20070130
  5. VECURONIUM BROMIDE [Concomitant]
     Indication: MUSCLE RELAXANT THERAPY
     Route: 042
     Dates: start: 20070130, end: 20070130
  6. VECURONIUM BROMIDE [Concomitant]
     Route: 042
     Dates: start: 20070306, end: 20070306
  7. FENTANYL [Concomitant]
     Indication: ANALGESIC THERAPY
     Route: 042
     Dates: start: 20070130, end: 20070130
  8. FENTANYL [Concomitant]
     Indication: MAINTENANCE OF ANAESTHESIA
     Dates: start: 20070306, end: 20070308
  9. PROPOFOL [Concomitant]
     Indication: ANALGESIC THERAPY
     Dates: start: 20070306, end: 20070308
  10. PHENYLEPHRINE [Concomitant]
     Indication: DRUG USE FOR UNKNOWN INDICATION
     Route: 042
     Dates: start: 20070306, end: 20070306
  11. DILTIAZEM [Concomitant]
     Indication: CORONARY ARTERY DILATATION
     Dates: start: 20070306, end: 20070307
  12. DILTIAZEM [Concomitant]
     Dates: start: 20070306, end: 20070307
  13. DILTIAZEM [Concomitant]
     Dates: start: 20070306, end: 20070307
  14. DILTIAZEM [Concomitant]
     Dates: start: 20070306, end: 20070307
  15. CEFMETAZOLE SODIUM [Concomitant]
     Indication: ANTIBIOTIC PROPHYLAXIS
     Dates: start: 20070306
  16. THIAMYLAL SODIUM [Concomitant]
     Indication: INDUCTION OF ANAESTHESIA
     Route: 042
     Dates: start: 20070130, end: 20070130
  17. THIAMYLAL SODIUM [Concomitant]
     Route: 042
     Dates: start: 20070306, end: 20070306

REACTIONS (7)
  - ATRIOVENTRICULAR BLOCK COMPLETE [None]
  - BRADYCARDIA [None]
  - ELECTROCARDIOGRAM P WAVE ABNORMAL [None]
  - ELECTROCARDIOGRAM PQ INTERVAL PROLONGED [None]
  - ELECTROCARDIOGRAM ST SEGMENT ELEVATION [None]
  - VENTRICULAR EXTRASYSTOLES [None]
  - VENTRICULAR TACHYCARDIA [None]
